FAERS Safety Report 4651195-6 (Version None)
Quarter: 2005Q2

REPORT INFORMATION
  Report Type: 
  Country: None (occurrence: None)
  Receive Date: 20050331
  Receipt Date: 20050216
  Transmission Date: 20051028
  Serious: No
  Sender: FDA-Public Use
  Company Number: 05P-163-0289168-00

PATIENT
  Age: 47 Year
  Sex: Female
  Weight: 58.9676 kg

DRUGS (9)
  1. HUMIRA [Suspect]
     Indication: RHEUMATOID ARTHRITIS
     Dosage: 40 MG, 1 IN 2 WK, SUBCUTANEOUS
     Route: 058
     Dates: start: 20050128
  2. OXYGEN [Concomitant]
  3. FENTANYL [Concomitant]
  4. HYDROCODONE BITARTRATE [Concomitant]
  5. ALPRAZOLAM [Concomitant]
  6. OXYCODONE HCL [Concomitant]
  7. MULTI-VITAMINS [Concomitant]
  8. COD-LIVER OIL [Concomitant]
  9. ACIDOPHILLUS [Concomitant]

REACTIONS (9)
  - CONDITION AGGRAVATED [None]
  - DYSMENORRHOEA [None]
  - DYSPNOEA EXACERBATED [None]
  - FATIGUE [None]
  - FLUSHING [None]
  - NON-CARDIAC CHEST PAIN [None]
  - OLIGOMENORRHOEA [None]
  - PALLOR [None]
  - VAGINAL DISCHARGE [None]
